FAERS Safety Report 4699324-2 (Version None)
Quarter: 2005Q2

REPORT INFORMATION
  Report Type: 
  Country: None (occurrence: None)
  Receive Date: 20050624
  Receipt Date: 20050609
  Transmission Date: 20051028
  Serious: Yes (Hospitalization)
  Sender: FDA-Public Use
  Company Number: FR-GLAXOSMITHKLINE-B0383939A

PATIENT
  Age: 48 Year
  Sex: Male

DRUGS (2)
  1. AUGMENTIN '125' [Suspect]
     Indication: ORAL PAIN
     Dosage: 1UNIT SINGLE DOSE
     Route: 048
     Dates: start: 20050530, end: 20050530
  2. IBUPROFEN [Suspect]
     Indication: ORAL PAIN
     Dosage: 1UNIT SINGLE DOSE
     Route: 048
     Dates: start: 20050530, end: 20050530

REACTIONS (12)
  - ANAPHYLACTIC SHOCK [None]
  - EYELID OEDEMA [None]
  - FACE OEDEMA [None]
  - HYPERHIDROSIS [None]
  - HYPOTENSION [None]
  - MALAISE [None]
  - NAUSEA [None]
  - PALLOR [None]
  - SYNCOPE [None]
  - TONGUE OEDEMA [None]
  - TREMOR [None]
  - URTICARIA GENERALISED [None]
